FAERS Safety Report 8890570 (Version 1)
Quarter: 2012Q4

REPORT INFORMATION
  Report Type: 
  Country: IT (occurrence: IT)
  Receive Date: 20121107
  Receipt Date: 20121107
  Transmission Date: 20130627
  Serious: Yes (Hospitalization)
  Sender: FDA-Public Use
  Company Number: IT-ASTELLAS-2012US010679

PATIENT
  Age: 70 Year
  Sex: Male

DRUGS (1)
  1. TARCEVA [Suspect]
     Indication: LUNG CANCER METASTATIC
     Dosage: 100 mg, UID/QD
     Route: 048
     Dates: start: 20111025, end: 20121029

REACTIONS (3)
  - Incorrect dose administered [Unknown]
  - Acute respiratory failure [Recovered/Resolved]
  - Hyperpyrexia [Recovered/Resolved]
